FAERS Safety Report 18000056 (Version 1)
Quarter: 2020Q3

REPORT INFORMATION
  Report Type: Report from Study
  Country: CN (occurrence: CN)
  Receive Date: 20200709
  Receipt Date: 20200709
  Transmission Date: 20201103
  Serious: Yes (Other)
  Sender: FDA-Public Use
  Company Number: CN-ROCHE-2638213

PATIENT

DRUGS (4)
  1. ALTEPLASE. [Suspect]
     Active Substance: ALTEPLASE
     Indication: ACUTE MYOCARDIAL INFARCTION
     Dosage: FIRST, INTRAVENOUS INFUSION OF 15 MG
     Route: 042
  2. ALTEPLASE. [Suspect]
     Active Substance: ALTEPLASE
     Dosage: INTRAVENOUS INFUSION OF 50 MG 30 MIN LATER, DAILY DOSE?100 MG
     Route: 042
  3. ALTEPLASE. [Suspect]
     Active Substance: ALTEPLASE
     Dosage: INTRAVENOUS INFUSION OF THE REMAINING 35 MG WITHIN 60 MIN
     Route: 042
  4. TIROFIBAN [Concomitant]
     Active Substance: TIROFIBAN
     Indication: ACUTE MYOCARDIAL INFARCTION
     Dosage: TIME OF ADMINISTRATION WAS 36 HOURS.
     Route: 042

REACTIONS (1)
  - Drug ineffective [Unknown]
